FAERS Safety Report 13337657 (Version 1)
Quarter: 2017Q1

REPORT INFORMATION
  Report Type: Spontaneous
  Country: US (occurrence: US)
  Receive Date: 20170314
  Receipt Date: 20170314
  Transmission Date: 20170428
  Serious: Yes (Death, Life-Threatening, Hospitalization, Disabling, Other)
  Sender: FDA-Public Use
  Company Number: None

PATIENT
  Age: 87 Year
  Sex: Female
  Weight: 72.64 kg

DRUGS (5)
  1. FLAGVL [Concomitant]
  2. ALBUTEROL .083PR CNT 25 3ML [Suspect]
     Active Substance: ALBUTEROL SULFATE
     Indication: WHEEZING
     Dates: start: 20170127, end: 20170203
  3. HYOSCYAMINE. [Concomitant]
     Active Substance: HYOSCYAMINE
  4. CIPROFLOYACIN [Concomitant]
  5. LORAZEPAN 2 MG [Suspect]
     Active Substance: LORAZEPAM
     Indication: SLEEP DISORDER
     Dates: start: 20170124, end: 20170203

REACTIONS (2)
  - Overdose [None]
  - Drug abuse [None]

NARRATIVE: CASE EVENT DATE: 20170203
